FAERS Safety Report 25207708 (Version 6)
Quarter: 2025Q3

REPORT INFORMATION
  Report Type: Spontaneous
  Country: JP (occurrence: JP)
  Receive Date: 20250417
  Receipt Date: 20250718
  Transmission Date: 20251020
  Serious: Yes (Hospitalization, Other)
  Sender: MERCK SHARP & DOHME LLC
  Company Number: JP-009507513-2277169

PATIENT
  Age: 68 Year
  Sex: Female

DRUGS (5)
  1. KEYTRUDA [Suspect]
     Active Substance: PEMBROLIZUMAB
     Indication: Triple negative breast cancer
     Route: 041
     Dates: start: 20231122, end: 20241211
  2. CARBOPLATIN [Concomitant]
     Active Substance: CARBOPLATIN
     Indication: Triple negative breast cancer
     Route: 041
     Dates: start: 20231122, end: 202402
  3. PACLITAXEL [Concomitant]
     Active Substance: PACLITAXEL
     Indication: Triple negative breast cancer
     Route: 041
     Dates: start: 20231122, end: 202402
  4. CYCLOPHOSPHAMIDE [Concomitant]
     Active Substance: CYCLOPHOSPHAMIDE
     Indication: Triple negative breast cancer
     Route: 041
     Dates: start: 20240213, end: 202406
  5. EPIRUBICIN [Concomitant]
     Active Substance: EPIRUBICIN
     Indication: Triple negative breast cancer
     Route: 041
     Dates: start: 20240313, end: 202406

REACTIONS (7)
  - Diabetes mellitus inadequate control [Unknown]
  - Device infusion issue [Unknown]
  - Pleural effusion [Recovered/Resolved]
  - Immune-mediated neurological disorder [Not Recovered/Not Resolved]
  - Erythema [Recovered/Resolved]
  - Type 1 diabetes mellitus [Not Recovered/Not Resolved]
  - Hepatic mass [Unknown]

NARRATIVE: CASE EVENT DATE: 20241101
